FAERS Safety Report 15829378 (Version 1)
Quarter: 2019Q1

REPORT INFORMATION
  Report Type: Spontaneous
  Country: US (occurrence: US)
  Receive Date: 20190115
  Receipt Date: 20190115
  Transmission Date: 20190417
  Serious: No
  Sender: FDA-Public Use
  Company Number: US-ALLERGAN-1841922US

PATIENT
  Sex: Female

DRUGS (4)
  1. MANY OTHER DRY EYE DROPS [Concomitant]
     Indication: DRY EYE
     Route: 047
  2. LIFITEGRAST [Concomitant]
     Active Substance: LIFITEGRAST
     Indication: DRY EYE
     Route: 047
  3. RESTASIS [Suspect]
     Active Substance: CYCLOSPORINE
     Indication: DRY EYE
     Dosage: UNK
     Route: 047
  4. BLOOD TEARS [Concomitant]

REACTIONS (2)
  - Eye pain [Unknown]
  - Eye irritation [Unknown]
